FAERS Safety Report 23920483 (Version 1)
Quarter: 2024Q2

REPORT INFORMATION
  Report Type: Spontaneous
  Country: CA (occurrence: CA)
  Receive Date: 20240530
  Receipt Date: 20240530
  Transmission Date: 20240716
  Serious: Yes (Other)
  Sender: FDA-Public Use
  Company Number: CA-BAYER-2024A074772

PATIENT
  Age: 46 Year
  Sex: Female

DRUGS (17)
  1. NAPROXEN SODIUM [Suspect]
     Active Substance: NAPROXEN\NAPROXEN SODIUM
     Dosage: 500 MG
  2. CETIRIZINE [Suspect]
     Active Substance: CETIRIZINE HYDROCHLORIDE
     Indication: Muckle-Wells syndrome
     Dosage: 2 DF, QD 20 MG
  3. CYCLOSPORINE [Suspect]
     Active Substance: CYCLOSPORINE
     Indication: Muckle-Wells syndrome
     Dosage: 2 DF, QD 150 MG
  4. PANTOPRAZOLE SODIUM [Suspect]
     Active Substance: PANTOPRAZOLE SODIUM
     Indication: Muckle-Wells syndrome
     Dosage: 1 DF, QD 40 MG
  5. AMLODIPINE MALEATE [Suspect]
     Active Substance: AMLODIPINE MALEATE
     Indication: Muckle-Wells syndrome
     Dosage: 1 DF, QD 5 MG
  6. LORAZEPAM [Suspect]
     Active Substance: LORAZEPAM
     Indication: Muckle-Wells syndrome
     Dosage: 3 DF, QD 0.5 MG
  7. ZOPICLONE [Suspect]
     Active Substance: ZOPICLONE
     Indication: Muckle-Wells syndrome
     Dosage: 1 DF, QD 7.5 MG
  8. OMALIZUMAB [Suspect]
     Active Substance: OMALIZUMAB
     Indication: Muckle-Wells syndrome
     Dosage: 4 DF, OW 450 MG
  9. BUDESONIDE\FORMOTEROL FUMARATE [Concomitant]
     Active Substance: BUDESONIDE\FORMOTEROL FUMARATE
     Indication: Product used for unknown indication
     Dosage: 2 DF, QD 200 MG
  10. YASMIN [Concomitant]
     Active Substance: DROSPIRENONE\ETHINYL ESTRADIOL
     Indication: Product used for unknown indication
     Dosage: 1 DF, QD
  11. SYNTHROID [Concomitant]
     Active Substance: LEVOTHYROXINE SODIUM
     Indication: Product used for unknown indication
     Dosage: 1 DF, QD 0.88 MG
  12. VALACYCLOVIR HYDROCHLORIDE [Concomitant]
     Active Substance: VALACYCLOVIR HYDROCHLORIDE
     Indication: Product used for unknown indication
     Dosage: 500 MG
  13. PANTOPRAZOLE SODIUM [Concomitant]
     Active Substance: PANTOPRAZOLE SODIUM
     Indication: Product used for unknown indication
     Dosage: 1 DF, QD 40 MG
  14. NAPROXEN [Concomitant]
     Active Substance: NAPROXEN
     Indication: Product used for unknown indication
     Dosage: 500 MG
  15. AMLODIPINE [Concomitant]
     Active Substance: AMLODIPINE BESYLATE
     Indication: Product used for unknown indication
     Dosage: 1 DF, QD 5 MG
  16. CITALOPRAM [Concomitant]
     Active Substance: CITALOPRAM\CITALOPRAM HYDROBROMIDE
     Indication: Product used for unknown indication
     Dosage: 1 DF, QD 20 MG
  17. ZOPICLONE [Concomitant]
     Active Substance: ZOPICLONE
     Indication: Product used for unknown indication
     Dosage: 1 DF, QD 7.5 MG

REACTIONS (7)
  - Angioedema [None]
  - C-reactive protein increased [Unknown]
  - Serum amyloid A protein increased [Unknown]
  - Oedema peripheral [Unknown]
  - Pruritus [Unknown]
  - Urticaria [Unknown]
  - Therapeutic product effect incomplete [Unknown]
